FAERS Safety Report 9878993 (Version 1)
Quarter: 2014Q1

REPORT INFORMATION
  Report Type: Spontaneous
  Country: US (occurrence: US)
  Receive Date: 20140206
  Receipt Date: 20140206
  Transmission Date: 20141002
  Serious: No
  Sender: FDA-Public Use
  Company Number: US-ALLERGAN-1313047US

PATIENT
  Age: 56 Year
  Sex: Female

DRUGS (12)
  1. BOTOX COSMETIC [Suspect]
     Indication: SKIN WRINKLING
     Dosage: 25 UNITS, SINGLE
     Route: 030
     Dates: start: 20130824, end: 20130824
  2. BOTOX COSMETIC [Suspect]
     Indication: SKIN WRINKLING
     Dosage: 5 UNITS, SINGLE
     Route: 030
     Dates: start: 20130824, end: 20130824
  3. BOTOX COSMETIC [Suspect]
     Indication: SKIN WRINKLING
     Dosage: 5 UNITS, SINGLE
     Route: 030
     Dates: start: 20130824, end: 20130824
  4. BOTOX COSMETIC [Suspect]
     Dosage: UNK UNK, SINGLE
     Dates: start: 20130824, end: 20130824
  5. BOTOX COSMETIC [Suspect]
     Dosage: UNK
  6. COQ10                              /00517201/ [Concomitant]
     Indication: SUPPLEMENTATION THERAPY
     Dosage: UNK
  7. CALCIUM [Concomitant]
     Indication: SUPPLEMENTATION THERAPY
     Dosage: UNK
  8. MVI [Concomitant]
     Indication: SUPPLEMENTATION THERAPY
     Dosage: UNK
  9. VITAMIN D                          /00107901/ [Concomitant]
     Indication: SUPPLEMENTATION THERAPY
     Dosage: UNK
  10. B COMPLEX                          /00212701/ [Concomitant]
     Indication: SUPPLEMENTATION THERAPY
     Dosage: UNK
  11. DIM                                /03044901/ [Concomitant]
     Indication: HOT FLUSH
     Dosage: UNK
  12. ANTIOXIDANTS [Concomitant]
     Indication: SUPPLEMENTATION THERAPY
     Dosage: UNK

REACTIONS (3)
  - Skin wrinkling [Unknown]
  - Eyelid sensory disorder [Unknown]
  - Skin tightness [Unknown]
